FAERS Safety Report 14857956 (Version 1)
Quarter: 2018Q2

REPORT INFORMATION
  Report Type: Spontaneous
  Country: US (occurrence: US)
  Receive Date: 20180508
  Receipt Date: 20180508
  Transmission Date: 20180711
  Serious: No
  Sender: FDA-Public Use
  Company Number: US-TEVA-2018-US-889089

PATIENT
  Age: 52 Year
  Sex: Female
  Weight: 100 kg

DRUGS (3)
  1. LEVOFLOXACIN. [Concomitant]
     Active Substance: LEVOFLOXACIN
     Route: 065
  2. SYNRIBO [Suspect]
     Active Substance: OMACETAXINE MEPESUCCINATE
     Indication: CHRONIC MYELOID LEUKAEMIA
     Dosage: DOSE STRENGTH:  8
     Route: 065
     Dates: start: 20180327
  3. VALACYLOVIR [Concomitant]
     Active Substance: VALACYCLOVIR HYDROCHLORIDE
     Route: 065

REACTIONS (2)
  - Headache [Unknown]
  - Alopecia [Unknown]

NARRATIVE: CASE EVENT DATE: 201803
